FAERS Safety Report 19652861 (Version 1)
Quarter: 2021Q3

REPORT INFORMATION
  Report Type: Spontaneous
  Country: IT (occurrence: IT)
  Receive Date: 20210803
  Receipt Date: 20210803
  Transmission Date: 20211014
  Serious: Yes (Other)
  Sender: FDA-Public Use
  Company Number: IT-SUN PHARMACEUTICAL INDUSTRIES LTD-2021RR-306547

PATIENT
  Age: 57 Year
  Sex: Male

DRUGS (6)
  1. CARBOPLATIN. [Suspect]
     Active Substance: CARBOPLATIN
     Indication: THYMIC CANCER METASTATIC
     Dosage: UNK, 6 COURSES, 3 WEEKLY
     Route: 065
     Dates: start: 201610, end: 201702
  2. GEMCITABINE. [Suspect]
     Active Substance: GEMCITABINE
     Indication: THYMIC CANCER METASTATIC
     Dosage: UNK
     Route: 065
     Dates: start: 201707, end: 201712
  3. PACLITAXEL. [Suspect]
     Active Substance: PACLITAXEL
     Indication: THYMIC CANCER METASTATIC
     Dosage: UNK, 6 COURSES, 3 WEEKLY
     Route: 065
     Dates: start: 201610, end: 201702
  4. DOXORUBICIN [Suspect]
     Active Substance: DOXORUBICIN
     Indication: THYMIC CANCER METASTATIC
     Dosage: 40 MILLIGRAM/SQ. METER, UNK
     Route: 065
     Dates: start: 201802
  5. CYCLOPHOSPHAMIDE. [Suspect]
     Active Substance: CYCLOPHOSPHAMIDE
     Indication: THYMIC CANCER METASTATIC
     Dosage: 700 MILLIGRAM/SQ. METER, UNK
     Route: 065
     Dates: start: 201802
  6. VINCRISTINE [Suspect]
     Active Substance: VINCRISTINE
     Indication: THYMIC CANCER METASTATIC
     Dosage: 0.6 MILLIGRAM/SQ. METER, UNK
     Route: 065
     Dates: start: 201802

REACTIONS (3)
  - Ejection fraction decreased [Recovering/Resolving]
  - Therapeutic product effect incomplete [Unknown]
  - Disease progression [Unknown]
